FAERS Safety Report 13260390 (Version 1)
Quarter: 2017Q1

REPORT INFORMATION
  Report Type: Spontaneous
  Country: CO (occurrence: CO)
  Receive Date: 20170222
  Receipt Date: 20170222
  Transmission Date: 20170428
  Serious: Yes (Other)
  Sender: FDA-Public Use
  Company Number: CO-PFIZER INC-2017074580

PATIENT
  Age: 49 Year
  Sex: Male
  Weight: 90 kg

DRUGS (2)
  1. CIPROFLOXACIN. [Suspect]
     Active Substance: CIPROFLOXACIN
     Indication: PROPHYLAXIS
     Route: 048
  2. AMPICILLIN SODIUM/SULBACTAM SODIUM [Suspect]
     Active Substance: AMPICILLIN SODIUM\SULBACTAM SODIUM
     Indication: PROPHYLAXIS
     Route: 042

REACTIONS (10)
  - Speech disorder [Unknown]
  - Leukocytosis [Unknown]
  - Septic embolus [Unknown]
  - Pyrexia [Unknown]
  - Empyema [Unknown]
  - Spleen disorder [Unknown]
  - Hemiparesis [Unknown]
  - Meningitis [Unknown]
  - Headache [Unknown]
  - Seizure [Unknown]

NARRATIVE: CASE EVENT DATE: 20160822
